FAERS Safety Report 8314172-X (Version None)
Quarter: 2012Q2

REPORT INFORMATION
  Report Type: 
  Country: None (occurrence: None)
  Receive Date: 20120424
  Receipt Date: 20120418
  Transmission Date: 20120825
  Serious: Yes (Death, Hospitalization)
  Sender: FDA-Public Use
  Company Number: 2012SP020486

PATIENT
  Age: 47 Year
  Sex: Female

DRUGS (8)
  1. SYCREST (ASENAPINE /05706901/) [Suspect]
     Indication: PRODUCT USED FOR UNKNOWN INDICATION
     Dosage: 5 MG; QAM, 5 MG; BID, 15 MG; QD, 20 MG; QD
     Dates: start: 20120404
  2. SYCREST (ASENAPINE /05706901/) [Suspect]
     Indication: PRODUCT USED FOR UNKNOWN INDICATION
     Dosage: 5 MG; QAM, 5 MG; BID, 15 MG; QD, 20 MG; QD
     Dates: start: 20120416
  3. SYCREST (ASENAPINE /05706901/) [Suspect]
     Indication: PRODUCT USED FOR UNKNOWN INDICATION
     Dosage: 5 MG; QAM, 5 MG; BID, 15 MG; QD, 20 MG; QD
     Dates: start: 20120410
  4. SYCREST (ASENAPINE /05706901/) [Suspect]
     Indication: PRODUCT USED FOR UNKNOWN INDICATION
     Dosage: 5 MG; QAM, 5 MG; BID, 15 MG; QD, 20 MG; QD
     Dates: start: 20120413
  5. CALCIT [Concomitant]
  6. TRILEPTAL [Concomitant]
  7. CLONAZEPAM [Concomitant]
  8. DEPAKENE [Concomitant]

REACTIONS (1)
  - AGITATION [None]
